FAERS Safety Report 20783051 (Version 3)
Quarter: 2022Q2

REPORT INFORMATION
  Report Type: Spontaneous
  Country: GB (occurrence: GB)
  Receive Date: 20220504
  Receipt Date: 20220518
  Transmission Date: 20220720
  Serious: Yes (Other)
  Sender: FDA-Public Use
  Company Number: GB-NOVARTISPH-NVSC2022GB099498

PATIENT
  Age: 55 Year
  Sex: Male

DRUGS (2)
  1. ADALIMUMAB [Suspect]
     Active Substance: ADALIMUMAB
     Indication: Axial spondyloarthritis
     Dosage: UNK
     Route: 065
     Dates: start: 2019
  2. ADALIMUMAB [Suspect]
     Active Substance: ADALIMUMAB
     Indication: Peripheral spondyloarthritis

REACTIONS (6)
  - Peripheral spondyloarthritis [Unknown]
  - Condition aggravated [Unknown]
  - Spinal pain [Unknown]
  - Paradoxical psoriasis [Unknown]
  - Therapy non-responder [Unknown]
  - Product use in unapproved indication [Unknown]
